FAERS Safety Report 10180055 (Version 1)
Quarter: 2014Q2

REPORT INFORMATION
  Report Type: Spontaneous
  Country: US (occurrence: US)
  Receive Date: 20140519
  Receipt Date: 20140519
  Transmission Date: 20141212
  Serious: No
  Sender: FDA-Public Use
  Company Number: US-AMGEN INC.-USASP2013073710

PATIENT
  Age: 68 Year
  Sex: Female

DRUGS (1)
  1. PROLIA [Suspect]
     Indication: PRODUCT USED FOR UNKNOWN INDICATION
     Dosage: UNK
     Route: 065
     Dates: start: 20130813

REACTIONS (5)
  - Adverse drug reaction [Unknown]
  - Oral discomfort [Unknown]
  - Glossodynia [Unknown]
  - Paraesthesia oral [Unknown]
  - Lip blister [Unknown]
